FAERS Safety Report 11210867 (Version 1)
Quarter: 2015Q2

REPORT INFORMATION
  Report Type: Spontaneous
  Country: BR (occurrence: BR)
  Receive Date: 20150622
  Receipt Date: 20150622
  Transmission Date: 20150821
  Serious: Yes (Other)
  Sender: FDA-Public Use
  Company Number: PHHY2015BR069574

PATIENT
  Age: 36 Year
  Sex: Female

DRUGS (16)
  1. BECLOMETHASONE [Suspect]
     Active Substance: BECLOMETHASONE
     Indication: ANTIPHOSPHOLIPID SYNDROME
  2. FLUOXETINE [Suspect]
     Active Substance: FLUOXETINE\FLUOXETINE HYDROCHLORIDE
     Indication: ASTHMA
     Dosage: 40 MG, QD
     Route: 065
  3. ALBUTEROL. [Suspect]
     Active Substance: ALBUTEROL
     Indication: ASTHMA
     Dosage: 3 TO 10 TIMES A DAY
     Route: 065
  4. PREDNISONE. [Suspect]
     Active Substance: PREDNISONE
     Indication: ANTIPHOSPHOLIPID SYNDROME
     Dosage: 80 MG, QD
     Route: 048
  5. BUDESONIDE. [Suspect]
     Active Substance: BUDESONIDE
     Indication: ASTHMA
     Dosage: 50 UG, BID
     Route: 045
  6. BECLOMETHASONE [Suspect]
     Active Substance: BECLOMETHASONE
     Indication: ASTHMA
     Dosage: 800 UG, BID
     Route: 055
  7. BUDESONIDE, FORMOTEROL FUMARATE [Suspect]
     Active Substance: BUDESONIDE\FORMOTEROL FUMARATE DIHYDRATE
     Indication: ASTHMA
     Dosage: 1 DF, QD (12/400 MCG)
     Route: 065
  8. FLUOXETINE [Suspect]
     Active Substance: FLUOXETINE\FLUOXETINE HYDROCHLORIDE
     Indication: ANTIPHOSPHOLIPID SYNDROME
  9. ALBUTEROL. [Suspect]
     Active Substance: ALBUTEROL
     Indication: ANTIPHOSPHOLIPID SYNDROME
  10. BUDESONIDE. [Suspect]
     Active Substance: BUDESONIDE
     Indication: ANTIPHOSPHOLIPID SYNDROME
  11. BUDESONIDE, FORMOTEROL FUMARATE [Suspect]
     Active Substance: BUDESONIDE\FORMOTEROL FUMARATE DIHYDRATE
     Indication: ANTIPHOSPHOLIPID SYNDROME
  12. PREDNISONE. [Suspect]
     Active Substance: PREDNISONE
     Indication: ASTHMA
     Dosage: 5 MG, QD
     Route: 065
  13. MONTELUKAST SODIUM. [Suspect]
     Active Substance: MONTELUKAST SODIUM
     Indication: ASTHMA
     Dosage: 10 MG, QD
     Route: 065
  14. MONTELUKAST SODIUM. [Suspect]
     Active Substance: MONTELUKAST SODIUM
     Indication: ANTIPHOSPHOLIPID SYNDROME
  15. OMEPRAZOLE. [Suspect]
     Active Substance: OMEPRAZOLE
     Indication: ASTHMA
     Dosage: 20 MG, QD
     Route: 065
  16. OMEPRAZOLE. [Suspect]
     Active Substance: OMEPRAZOLE
     Indication: ANTIPHOSPHOLIPID SYNDROME

REACTIONS (2)
  - Antiphospholipid syndrome [Recovering/Resolving]
  - Asthma [Recovering/Resolving]
